FAERS Safety Report 5409387-4 (Version None)
Quarter: 2007Q3

REPORT INFORMATION
  Report Type: 
  Country: None (occurrence: None)
  Receive Date: 20070808
  Receipt Date: 20070808
  Transmission Date: 20080115
  Serious: Yes (Other)
  Sender: FDA-Public Use
  Company Number: None

PATIENT
  Age: 43 Year
  Sex: Female
  Weight: 96.6162 kg

DRUGS (2)
  1. LISINOPRIL [Suspect]
     Indication: CHEST PAIN
     Dosage: 10MG ONCE A DAY
     Dates: start: 20070705, end: 20070807
  2. LISINOPRIL [Suspect]
     Indication: HYPERTENSION
     Dosage: 10MG ONCE A DAY
     Dates: start: 20070705, end: 20070807

REACTIONS (4)
  - CHILLS [None]
  - FATIGUE [None]
  - PARAESTHESIA [None]
  - PARANOIA [None]
